FAERS Safety Report 24528544 (Version 1)
Quarter: 2024Q4

REPORT INFORMATION
  Report Type: Spontaneous
  Country: US (occurrence: None)
  Receive Date: 20241019
  Receipt Date: 20241019
  Transmission Date: 20250115
  Serious: No
  Sender: Public
  Company Number: None

PATIENT
  Sex: Female
  Weight: 15 kg

DRUGS (1)
  1. MELPHALAN [Suspect]
     Active Substance: MELPHALAN
     Dates: end: 20240925

REACTIONS (2)
  - Maculopathy [None]
  - Ocular toxicity [None]

NARRATIVE: CASE EVENT DATE: 20241016
